FAERS Safety Report 10233156 (Version 1)
Quarter: 2014Q2

REPORT INFORMATION
  Report Type: Spontaneous
  Country: GB (occurrence: GB)
  Receive Date: 20140612
  Receipt Date: 20140612
  Transmission Date: 20141212
  Serious: Yes (Other)
  Sender: FDA-Public Use
  Company Number: GB-MYLANLABS-2014S1012909

PATIENT
  Age: 12 Year
  Sex: Male

DRUGS (6)
  1. OMEPRAZOLE [Suspect]
     Dosage: OMEPRAZOLE IV IN THE AFTERNOON
     Route: 042
     Dates: start: 20140418, end: 20140418
  2. LOSEC [Suspect]
     Indication: GASTROOESOPHAGEAL REFLUX DISEASE
     Route: 048
     Dates: start: 20140423
  3. LOSEC [Suspect]
     Indication: GASTROOESOPHAGEAL REFLUX DISEASE
     Route: 048
     Dates: start: 20140419, end: 20140422
  4. LOSEC [Suspect]
     Indication: GASTROOESOPHAGEAL REFLUX DISEASE
     Dosage: OMEPRAZOLE 40 MG
     Route: 048
     Dates: start: 20140417, end: 20140417
  5. LOSEC [Suspect]
     Indication: GASTROOESOPHAGEAL REFLUX DISEASE
     Dosage: OMEPRAZOLE ORAL IN THE MORNING
     Route: 048
     Dates: start: 20140418, end: 20140418
  6. RANITIDINE [Concomitant]

REACTIONS (6)
  - Haematemesis [Unknown]
  - Regurgitation [Unknown]
  - Gastric pH decreased [Unknown]
  - Gastrooesophageal reflux disease [Unknown]
  - Off label use [Unknown]
  - Circumstance or information capable of leading to medication error [Unknown]
